FAERS Safety Report 17115922 (Version 1)
Quarter: 2019Q4

REPORT INFORMATION
  Report Type: Spontaneous
  Country: US (occurrence: US)
  Receive Date: 20191204
  Receipt Date: 20191204
  Transmission Date: 20200122
  Serious: Yes (Death)
  Sender: FDA-Public Use
  Company Number: None

PATIENT
  Age: 7 Month
  Sex: Male
  Weight: 94.5 kg

DRUGS (15)
  1. VITAMIN D3 [Concomitant]
     Active Substance: CHOLECALCIFEROL
  2. APIXIBAN [Concomitant]
     Active Substance: APIXABAN
  3. LIPITOR [Concomitant]
     Active Substance: ATORVASTATIN CALCIUM
  4. SEVELAMER CARBONATE 800 MG TABLETS [Concomitant]
     Active Substance: SEVELAMER CARBONATE
  5. ELIQUIS [Concomitant]
     Active Substance: APIXABAN
  6. ATORVASTATIN [Concomitant]
     Active Substance: ATORVASTATIN
  7. FEROUS SULFATE [Concomitant]
  8. FUROSEMIDE. [Concomitant]
     Active Substance: FUROSEMIDE
  9. TYLENOL WITH CODEINE [Concomitant]
     Active Substance: ACETAMINOPHEN\CODEINE PHOSPHATE
  10. ACETAMINOPHEN. [Concomitant]
     Active Substance: ACETAMINOPHEN
  11. AMLODIPINE [Concomitant]
     Active Substance: AMLODIPINE BESYLATE
  12. NORCO [Concomitant]
     Active Substance: ACETAMINOPHEN\HYDROCODONE BITARTRATE
  13. SODIUM BICARBONATE. [Concomitant]
     Active Substance: SODIUM BICARBONATE
  14. PROCRIT [Suspect]
     Active Substance: ERYTHROPOIETIN
     Indication: ANAEMIA
     Dosage: ?          QUANTITY:1 INJECTION(S);OTHER FREQUENCY:EVERY 7 DAYS;?
     Route: 058
     Dates: start: 20190930, end: 20190930
  15. RENVELA [Concomitant]
     Active Substance: SEVELAMER CARBONATE

REACTIONS (1)
  - Myocardial infarction [None]

NARRATIVE: CASE EVENT DATE: 20191001
